FAERS Safety Report 6204197-2 (Version None)
Quarter: 2009Q2

REPORT INFORMATION
  Report Type: 
  Country: None (occurrence: None)
  Receive Date: 20090526
  Receipt Date: 20090526
  Transmission Date: 20091009
  Serious: Yes (Other)
  Sender: FDA-Public Use
  Company Number: None

PATIENT
  Age: 55 Year
  Sex: Female
  Weight: 68.0396 kg

DRUGS (1)
  1. SINGULAIR [Suspect]
     Indication: MULTIPLE ALLERGIES
     Dosage: 10 MG DAILY @ BEDTIME PO
     Route: 048
     Dates: start: 20090505, end: 20090522

REACTIONS (8)
  - AGITATION [None]
  - ANGER [None]
  - BRONCHITIS [None]
  - FEAR [None]
  - FEELING ABNORMAL [None]
  - IRRITABILITY [None]
  - PNEUMONIA [None]
  - THINKING ABNORMAL [None]
